FAERS Safety Report 5322716-5 (Version None)
Quarter: 2007Q2

REPORT INFORMATION
  Report Type: 
  Country: None (occurrence: None)
  Receive Date: 20070511
  Receipt Date: 20070503
  Transmission Date: 20071010
  Serious: Yes (Death, Other)
  Sender: FDA-Public Use
  Company Number: US-PFIZER INC-2006118532

PATIENT
  Sex: Male
  Weight: 99.8 kg

DRUGS (2)
  1. CELECOXIB [Suspect]
     Indication: ARTHRITIS
     Dates: start: 20000817, end: 20040818
  2. CELECOXIB [Suspect]
     Indication: ARTHRALGIA

REACTIONS (3)
  - CORONARY ARTERY DISEASE [None]
  - DIABETES MELLITUS [None]
  - MYOCARDIAL INFARCTION [None]
